FAERS Safety Report 18411340 (Version 9)
Quarter: 2025Q2

REPORT INFORMATION
  Report Type: Report from Study
  Country: DE (occurrence: DE)
  Receive Date: 20201021
  Receipt Date: 20250609
  Transmission Date: 20250716
  Serious: Yes (Hospitalization, Other)
  Sender: BRISTOL-MYERS SQUIBB COMPANY
  Company Number: DE-BRISTOL-MYERS SQUIBB COMPANY-BMS-2020-072457

PATIENT
  Age: 53 Year
  Sex: Male

DRUGS (4)
  1. NIVOLUMAB [Suspect]
     Active Substance: NIVOLUMAB
     Indication: Renal cell carcinoma
     Dosage: 3 MILLIGRAM/KILOGRAM, Q3WK
     Route: 042
     Dates: start: 20200608, end: 20200720
  2. IPILIMUMAB [Suspect]
     Active Substance: IPILIMUMAB
     Indication: Renal cell carcinoma
     Dosage: 1 MILLIGRAM/KILOGRAM, Q3WK
     Route: 042
     Dates: start: 20200608, end: 20200720
  3. ACTRAPID [Concomitant]
     Active Substance: INSULIN HUMAN
     Indication: Metabolic disorder
     Dates: start: 20200731
  4. LANTUS [Concomitant]
     Active Substance: INSULIN GLARGINE
     Indication: Metabolic disorder
     Dates: start: 20200731

REACTIONS (5)
  - Immune-mediated encephalitis [Recovered/Resolved]
  - Hemiparesis [Recovered/Resolved]
  - Hypophysitis [Recovering/Resolving]
  - Diabetes mellitus [Recovering/Resolving]
  - Organic brain syndrome [Recovered/Resolved]

NARRATIVE: CASE EVENT DATE: 20200731
